FAERS Safety Report 17888528 (Version 2)
Quarter: 2020Q2

REPORT INFORMATION
  Report Type: Spontaneous
  Country: RU (occurrence: RU)
  Receive Date: 20200612
  Receipt Date: 20200624
  Transmission Date: 20200714
  Serious: Yes (Other)
  Sender: FDA-Public Use
  Company Number: RU-009507513-2006RUS003030

PATIENT
  Age: 5 Year

DRUGS (2)
  1. SINGULAIR [Suspect]
     Active Substance: MONTELUKAST SODIUM
     Dosage: 4 BLISTERS FOR 7 TABLETS IN EACH ONE
     Route: 048
     Dates: start: 2018
  2. SINGULAIR [Suspect]
     Active Substance: MONTELUKAST SODIUM
     Dosage: 2 BLISTERS FOR 14 TABLETS IN EACH ONE
     Route: 048

REACTIONS (1)
  - Bronchial obstruction [Unknown]
